FAERS Safety Report 9649628 (Version 1)
Quarter: 2013Q4

REPORT INFORMATION
  Report Type: Report from Study
  Country: IN (occurrence: IN)
  Receive Date: 20131028
  Receipt Date: 20131028
  Transmission Date: 20140711
  Serious: Yes (Other)
  Sender: FDA-Public Use
  Company Number: IN-ROCHE-1295508

PATIENT
  Age: 34 Year
  Sex: Female
  Weight: 54 kg

DRUGS (2)
  1. EXXURA [Suspect]
     Indication: HEPATITIS C
     Route: 058
     Dates: start: 20130222, end: 20130810
  2. COPEGUS [Suspect]
     Indication: HEPATITIS C
     Dosage: 5 CAPSULES DAILY
     Route: 048
     Dates: start: 20130222, end: 20130810

REACTIONS (1)
  - Tachycardia [Not Recovered/Not Resolved]
